FAERS Safety Report 7357174-2 (Version None)
Quarter: 2011Q1

REPORT INFORMATION
  Report Type: 
  Country: None (occurrence: None)
  Receive Date: 20110317
  Receipt Date: 20110314
  Transmission Date: 20110831
  Serious: No
  Sender: FDA-Public Use
  Company Number: US-PFIZER INC-2011056575

PATIENT
  Sex: Female
  Weight: 90.703 kg

DRUGS (4)
  1. ADVIL CONGESTION RELIEF [Suspect]
     Indication: SNEEZING
  2. LISINOPRIL [Concomitant]
     Indication: HYPERTENSION
     Dosage: UNK
  3. ADVIL CONGESTION RELIEF [Suspect]
     Indication: SINUSITIS
     Dosage: UNK
     Dates: start: 20110313
  4. ADVIL CONGESTION RELIEF [Suspect]
     Indication: HEADACHE

REACTIONS (1)
  - DRUG INEFFECTIVE [None]
